FAERS Safety Report 9109938 (Version 2)
Quarter: 2013Q1

REPORT INFORMATION
  Report Type: Spontaneous
  Country: US (occurrence: US)
  Receive Date: 20130222
  Receipt Date: 20130325
  Transmission Date: 20140127
  Serious: Yes (Other)
  Sender: FDA-Public Use
  Company Number: US-BRISTOL-MYERS SQUIBB COMPANY-17158437

PATIENT
  Age: 55 Year
  Sex: Male

DRUGS (1)
  1. ORENCIA [Suspect]
     Indication: RHEUMATOID ARTHRITIS
     Dosage: LAST INFUSION WAS ON 16NOV2012,01FEB13
     Route: 042
     Dates: start: 20121116, end: 20121214

REACTIONS (2)
  - Drug ineffective [Unknown]
  - Arthropathy [Unknown]
